FAERS Safety Report 13583142 (Version 7)
Quarter: 2021Q1

REPORT INFORMATION
  Report Type: Spontaneous
  Country: US (occurrence: US)
  Receive Date: 20170525
  Receipt Date: 20210125
  Transmission Date: 20210419
  Serious: Yes (Other)
  Sender: FDA-Public Use
  Company Number: US-JAZZ-2017-US-005558

PATIENT
  Sex: Female

DRUGS (38)
  1. XYREM [Suspect]
     Active Substance: SODIUM OXYBATE
     Indication: NARCOLEPSY
     Dosage: 2.25G, BID
     Route: 048
     Dates: start: 201203, end: 201204
  2. TORADOL [Concomitant]
     Active Substance: KETOROLAC TROMETHAMINE
  3. NATURE?THROID [Concomitant]
     Active Substance: THYROID, PORCINE
  4. ZINC GLUCONATE [Concomitant]
     Active Substance: ZINC GLUCONATE
  5. VERAPAMIL HYDROCHLORIDE. [Concomitant]
     Active Substance: VERAPAMIL HYDROCHLORIDE
  6. VITAMIN D3 [Concomitant]
     Active Substance: CHOLECALCIFEROL
  7. XYREM [Suspect]
     Active Substance: SODIUM OXYBATE
     Dosage: 3G, BID
     Route: 048
     Dates: start: 201204, end: 201209
  8. CHROMIUM PICOLINAT [Concomitant]
  9. FOLIC ACID. [Concomitant]
     Active Substance: FOLIC ACID
  10. MINIVELLE [Concomitant]
     Active Substance: ESTRADIOL
  11. SPIRONOLACTONE. [Concomitant]
     Active Substance: SPIRONOLACTONE
  12. TRAZODONE [Concomitant]
     Active Substance: TRAZODONE HYDROCHLORIDE
  13. XANAX [Concomitant]
     Active Substance: ALPRAZOLAM
  14. MELATONIN [Concomitant]
     Active Substance: MELATONIN
  15. CAMBIA [Concomitant]
     Active Substance: DICLOFENAC POTASSIUM
  16. DIPHENHYDRAMINE HYDROCHLORIDE. [Concomitant]
     Active Substance: DIPHENHYDRAMINE HYDROCHLORIDE
  17. TRAMADOL HCL [Concomitant]
     Active Substance: TRAMADOL HYDROCHLORIDE
  18. WESTHROID [Concomitant]
     Active Substance: THYROGLOBULIN
  19. METHOCARBAMOL. [Concomitant]
     Active Substance: METHOCARBAMOL
  20. CALCIUM CITRATE +D [Concomitant]
     Active Substance: CALCIUM CITRATE\VITAMIN D
  21. MAGNESIUM [Concomitant]
     Active Substance: MAGNESIUM
  22. ASCORBIC ACID. [Concomitant]
     Active Substance: ASCORBIC ACID
  23. ATIVAN [Concomitant]
     Active Substance: LORAZEPAM
  24. PROPRANOLOL [Concomitant]
     Active Substance: PROPRANOLOL HYDROCHLORIDE
  25. DEMEROL [Concomitant]
     Active Substance: MEPERIDINE HYDROCHLORIDE
  26. IODINE. [Concomitant]
     Active Substance: IODINE
  27. KLONOPIN [Concomitant]
     Active Substance: CLONAZEPAM
  28. PROCHLORPERAZINE EDISYLATE. [Concomitant]
     Active Substance: PROCHLORPERAZINE EDISYLATE
  29. SELENIUM [Concomitant]
     Active Substance: SELENIUM
  30. PHYTOMENADIONE [Concomitant]
     Active Substance: PHYTONADIONE
  31. CALCARB [Concomitant]
  32. ARTHROTEC [Concomitant]
     Active Substance: DICLOFENAC SODIUM\MISOPROSTOL
  33. PROMETHAZINE [Concomitant]
     Active Substance: PROMETHAZINE HYDROCHLORIDE
  34. ALBUTEROL SULFATE. [Concomitant]
     Active Substance: ALBUTEROL SULFATE
  35. MAGNESIUM CITRATE. [Concomitant]
     Active Substance: MAGNESIUM CITRATE
  36. XYREM [Suspect]
     Active Substance: SODIUM OXYBATE
     Dosage: 4.5G, BID
     Route: 048
     Dates: start: 201209
  37. ZINC ACETATE [Concomitant]
     Active Substance: ZINC ACETATE
  38. VERAPAMIL [Concomitant]
     Active Substance: VERAPAMIL HYDROCHLORIDE

REACTIONS (7)
  - Muscle spasms [Not Recovered/Not Resolved]
  - Spinal disorder [Not Recovered/Not Resolved]
  - Hepatic steatosis [Not Recovered/Not Resolved]
  - Weight increased [Unknown]
  - Gastritis [Not Recovered/Not Resolved]
  - Therapeutic procedure [Unknown]
  - Fluid retention [Not Recovered/Not Resolved]

NARRATIVE: CASE EVENT DATE: 2019
